FAERS Safety Report 6474283-0 (Version None)
Quarter: 2009Q4

REPORT INFORMATION
  Report Type: 
  Country: None (occurrence: None)
  Receive Date: 20091204
  Receipt Date: 20091130
  Transmission Date: 20100525
  Serious: Yes (Death, Hospitalization)
  Sender: FDA-Public Use
  Company Number: PHEH2009US14833

PATIENT
  Sex: Male
  Weight: 94 kg

DRUGS (11)
  1. EXELON [Suspect]
     Indication: DEMENTIA
     Dosage: 9.5 MG PER DAY
     Route: 062
     Dates: start: 20091017, end: 20091018
  2. PRAVACHOL [Concomitant]
     Indication: BLOOD CHOLESTEROL INCREASED
     Dosage: 8 MG, QD
     Route: 048
     Dates: start: 20010101, end: 20090901
  3. ACTOS [Concomitant]
     Indication: DIABETES MELLITUS
     Dosage: 4.5 MG, QD
     Route: 048
     Dates: start: 20010101, end: 20090901
  4. LOPID [Concomitant]
     Dosage: 60 MG, BID
     Route: 048
     Dates: start: 20010101, end: 20090901
  5. VERAPAMIL [Concomitant]
     Indication: HYPERTENSION
     Dosage: 240 MG, QD
     Route: 048
     Dates: start: 20010101, end: 20090901
  6. PRILOSEC [Concomitant]
     Indication: GASTROOESOPHAGEAL REFLUX DISEASE
     Dosage: 20 MG, QD
     Route: 048
     Dates: start: 20010101, end: 20090101
  7. AVALIDE [Concomitant]
     Indication: HYPERTENSION
     Dosage: UNK
     Route: 048
     Dates: start: 20010101, end: 20090901
  8. NAMENDA [Concomitant]
     Indication: DEMENTIA
     Dosage: 10 MG, BID
     Route: 048
     Dates: start: 20050201, end: 20090901
  9. ZETIA [Concomitant]
     Dosage: 10 MG, QD
     Route: 048
     Dates: start: 20070301, end: 20090901
  10. GLUCOPHAGE [Concomitant]
     Indication: DIABETES MELLITUS
     Dosage: 50 MG, BID
     Route: 048
     Dates: start: 20040801, end: 20090901
  11. BUPROPION HCL [Concomitant]
     Indication: DEPRESSION
     Dosage: 150 MG, BID
     Route: 048
     Dates: start: 20060601, end: 20090901

REACTIONS (5)
  - AGGRESSION [None]
  - AGITATION [None]
  - DEMENTIA ALZHEIMER'S TYPE [None]
  - IRRITABILITY [None]
  - PNEUMONIA [None]
